FAERS Safety Report 9366287 (Version 2)
Quarter: 2013Q3

REPORT INFORMATION
  Report Type: Spontaneous
  Country: US (occurrence: US)
  Receive Date: 20130625
  Receipt Date: 20130715
  Transmission Date: 20140515
  Serious: Yes (Life-Threatening, Hospitalization)
  Sender: FDA-Public Use
  Company Number: US-JNJFOC-20130607237

PATIENT
  Age: 60 Year
  Sex: Male

DRUGS (8)
  1. UNSPECIFIED FENTANYL TRANSDERMAL SYSTEM [Suspect]
     Indication: PAIN
     Route: 062
  2. HYDROXYCARBAMIDE [Concomitant]
     Indication: DYSPNOEA
     Route: 065
  3. HYDROXYCARBAMIDE [Concomitant]
     Indication: PRURITUS
     Route: 065
  4. HYDROXYCARBAMIDE [Concomitant]
     Indication: CHRONIC MYELOMONOCYTIC LEUKAEMIA
     Route: 065
  5. STEROIDS NOS [Concomitant]
     Indication: DYSPNOEA
     Route: 065
  6. STEROIDS NOS [Concomitant]
     Indication: PRURITUS
     Route: 065
  7. STEROIDS NOS [Concomitant]
     Indication: CHRONIC MYELOMONOCYTIC LEUKAEMIA
     Route: 065
  8. AZACITIDINE [Concomitant]
     Indication: CHRONIC MYELOMONOCYTIC LEUKAEMIA
     Route: 065

REACTIONS (13)
  - Intentional drug misuse [Unknown]
  - Depressed mood [Unknown]
  - Communication disorder [Unknown]
  - Renal failure [Unknown]
  - Tonic convulsion [Recovered/Resolved]
  - Asphyxia [Recovered/Resolved]
  - Hypotension [Unknown]
  - Thrombocytopenia [Unknown]
  - Incorrect route of drug administration [Unknown]
  - Intentional drug misuse [Unknown]
  - Overdose [Unknown]
  - Dyspnoea [Recovered/Resolved]
  - Decreased eye contact [Unknown]
